FAERS Safety Report 21959514 (Version 3)
Quarter: 2025Q3

REPORT INFORMATION
  Report Type: Spontaneous
  Country: EU (occurrence: EU)
  Receive Date: 20230206
  Receipt Date: 20250814
  Transmission Date: 20251021
  Serious: Yes (Other)
  Sender: MYLAN
  Company Number: EU-BRUNO-20220518

PATIENT
  Age: 30 Year
  Sex: Male

DRUGS (12)
  1. METFORMIN [Suspect]
     Active Substance: METFORMIN HYDROCHLORIDE
     Indication: Type 2 diabetes mellitus
  2. METFORMIN [Suspect]
     Active Substance: METFORMIN HYDROCHLORIDE
     Route: 065
  3. METFORMIN [Suspect]
     Active Substance: METFORMIN HYDROCHLORIDE
     Route: 065
  4. METFORMIN [Suspect]
     Active Substance: METFORMIN HYDROCHLORIDE
  5. LIRAGLUTIDE [Concomitant]
     Active Substance: LIRAGLUTIDE
     Indication: Product used for unknown indication
     Dosage: 0.6 MILLIGRAM, QD ( ONCE A DAY  )
  6. LIRAGLUTIDE [Concomitant]
     Active Substance: LIRAGLUTIDE
     Dosage: 0.6 MILLIGRAM, QD ( ONCE A DAY  )
     Route: 065
  7. LIRAGLUTIDE [Concomitant]
     Active Substance: LIRAGLUTIDE
     Dosage: 0.6 MILLIGRAM, QD ( ONCE A DAY  )
     Route: 065
  8. LIRAGLUTIDE [Concomitant]
     Active Substance: LIRAGLUTIDE
     Dosage: 0.6 MILLIGRAM, QD ( ONCE A DAY  )
  9. INSULIN GLARGINE [Concomitant]
     Active Substance: INSULIN GLARGINE
     Indication: Product used for unknown indication
     Dosage: 18 INTERNATIONAL UNIT, QD (300 U/ML (18 IU/DAY) )
  10. INSULIN GLARGINE [Concomitant]
     Active Substance: INSULIN GLARGINE
     Dosage: 18 INTERNATIONAL UNIT, QD (300 U/ML (18 IU/DAY) )
     Route: 065
  11. INSULIN GLARGINE [Concomitant]
     Active Substance: INSULIN GLARGINE
     Dosage: 18 INTERNATIONAL UNIT, QD (300 U/ML (18 IU/DAY) )
     Route: 065
  12. INSULIN GLARGINE [Concomitant]
     Active Substance: INSULIN GLARGINE
     Dosage: 18 INTERNATIONAL UNIT, QD (300 U/ML (18 IU/DAY) )

REACTIONS (3)
  - Type 2 diabetes mellitus [Recovering/Resolving]
  - Diabetic metabolic decompensation [Recovered/Resolved]
  - Condition aggravated [Recovering/Resolving]
